FAERS Safety Report 8078331-6 (Version None)
Quarter: 2012Q1

REPORT INFORMATION
  Report Type: 
  Country: None (occurrence: None)
  Receive Date: 20120127
  Receipt Date: 20110118
  Transmission Date: 20120608
  Serious: No
  Sender: FDA-Public Use
  Company Number: US-ABBOTT-09P-163-0608787-00

PATIENT
  Sex: Female
  Weight: 68.1 kg

DRUGS (7)
  1. LOVAZA [Concomitant]
     Indication: ARTHRALGIA
  2. HUMIRA [Suspect]
  3. HUMIRA [Suspect]
     Indication: CROHN'S DISEASE
     Dates: start: 20090501
  4. ACETAMINOPHEN [Concomitant]
     Indication: JOINT SWELLING
  5. LOVAZA [Concomitant]
     Indication: JOINT SWELLING
  6. CALCIUM [Concomitant]
  7. ACETAMINOPHEN [Concomitant]
     Indication: ARTHRALGIA

REACTIONS (5)
  - TENDONITIS [None]
  - JOINT SWELLING [None]
  - ASTHENIA [None]
  - ARTHRALGIA [None]
  - OEDEMA PERIPHERAL [None]
